FAERS Safety Report 5382168-6 (Version None)
Quarter: 2007Q3

REPORT INFORMATION
  Report Type: 
  Country: None (occurrence: None)
  Receive Date: 20070709
  Receipt Date: 20070702
  Transmission Date: 20080115
  Serious: Yes (Other)
  Sender: FDA-Public Use
  Company Number: DE-PFIZER INC-2007051837

PATIENT
  Sex: Female
  Weight: 68 kg

DRUGS (1)
  1. REACTINE DUO [Suspect]
     Indication: RHINITIS ALLERGIC
     Route: 048
     Dates: start: 20070620, end: 20070620

REACTIONS (3)
  - NERVOUSNESS [None]
  - PHARYNGEAL OEDEMA [None]
  - TACHYCARDIA [None]
